FAERS Safety Report 4930067-3 (Version None)
Quarter: 2006Q1

REPORT INFORMATION
  Report Type: 
  Country: None (occurrence: None)
  Receive Date: 20060228
  Receipt Date: 20060213
  Transmission Date: 20060701
  Serious: Yes (Other)
  Sender: FDA-Public Use
  Company Number: HQWYE837116FEB06

PATIENT
  Age: 33 Year
  Sex: Female

DRUGS (1)
  1. OVRAL-L (LEVONORGESTREL/ETHINYL ESTRADIOL, TABLET) [Suspect]
     Indication: OVARIAN CYST
     Dosage: 21 DAYS ORAL
     Route: 048

REACTIONS (2)
  - AMNESIA [None]
  - CEREBRAL VENOUS THROMBOSIS [None]
